FAERS Safety Report 23565769 (Version 1)
Quarter: 2024Q1

REPORT INFORMATION
  Report Type: Spontaneous
  Country: FR (occurrence: FR)
  Receive Date: 20240226
  Receipt Date: 20240226
  Transmission Date: 20240410
  Serious: Yes (Death)
  Sender: FDA-Public Use
  Company Number: None

PATIENT
  Age: 76 Year
  Sex: Male
  Weight: 65 kg

DRUGS (14)
  1. CARBOPLATIN [Suspect]
     Active Substance: CARBOPLATIN
     Indication: Cholangiocarcinoma
     Dosage: C1J8
     Dates: start: 20231226, end: 20231226
  2. GEMCITABINE [Suspect]
     Active Substance: GEMCITABINE
     Indication: Cholangiocarcinoma
     Dosage: C1J1
     Dates: start: 20231218, end: 20231218
  3. DURVALUMAB [Suspect]
     Active Substance: DURVALUMAB
     Indication: Cholangiocarcinoma
     Dosage: C1J1
     Dates: start: 20231218, end: 20231218
  4. CARVEDILOL [Concomitant]
     Active Substance: CARVEDILOL
  5. FEBUXOSTAT [Concomitant]
     Active Substance: FEBUXOSTAT
  6. APREPITANT [Concomitant]
     Active Substance: APREPITANT
  7. KARDEGIC [Concomitant]
     Active Substance: ASPIRIN DL-LYSINE
     Dosage: STRENGTH:  75 MG, POWDER FOR ORAL SOLUTION IN SACHET-DOSE
  8. OXYCONTIN [Concomitant]
     Active Substance: OXYCODONE HYDROCHLORIDE
     Dosage: STRENGTH: 30 MG, FILM-COATED PROLONGED RELEASE TABLET
  9. LISINOPRIL [Concomitant]
     Active Substance: LISINOPRIL
  10. ATORVASTATIN [Concomitant]
     Active Substance: ATORVASTATIN
  11. OXYCODONE HYDROCHLORIDE [Concomitant]
     Active Substance: OXYCODONE HYDROCHLORIDE
     Dosage: STRENGTH: 10 MG
  12. FUROSEMIDE [Concomitant]
     Active Substance: FUROSEMIDE
  13. GEMCITABINE [Suspect]
     Active Substance: GEMCITABINE
     Indication: Cholangiocarcinoma
     Dosage: C1J8
     Dates: start: 20231226, end: 20231226
  14. CARBOPLATIN [Suspect]
     Active Substance: CARBOPLATIN
     Indication: Cholangiocarcinoma
     Dosage: C1J1
     Dates: start: 20231218, end: 20231218

REACTIONS (2)
  - Agranulocytosis [Fatal]
  - Colitis [Fatal]

NARRATIVE: CASE EVENT DATE: 20231229
